FAERS Safety Report 23309629 (Version 2)
Quarter: 2023Q4

REPORT INFORMATION
  Report Type: Report from Study
  Country: US (occurrence: US)
  Receive Date: 20231218
  Receipt Date: 20231220
  Transmission Date: 20240110
  Serious: Yes (Death)
  Sender: FDA-Public Use
  Company Number: US-JNJFOC-20231224904

PATIENT
  Age: 40 Year
  Sex: Male

DRUGS (13)
  1. SPRAVATO [Suspect]
     Active Substance: ESKETAMINE
     Indication: Depression
     Dosage: 56 MG, 2 DOSES
     Dates: start: 20230706, end: 20230710
  2. SPRAVATO [Suspect]
     Active Substance: ESKETAMINE
     Dosage: 84 MG, 18 DOSES
     Dates: start: 20230712, end: 20231121
  3. ZOLOFT [Concomitant]
     Active Substance: SERTRALINE HYDROCHLORIDE
  4. CYMBALTA [Concomitant]
     Active Substance: DULOXETINE HYDROCHLORIDE
  5. ATIVAN [Concomitant]
     Active Substance: LORAZEPAM
  6. AMBIEN [Concomitant]
     Active Substance: ZOLPIDEM TARTRATE
  7. ABILIFY [Concomitant]
     Active Substance: ARIPIPRAZOLE
  8. LEVOMEFOLIC ACID [Concomitant]
     Active Substance: LEVOMEFOLIC ACID
  9. CARDIZEM [Concomitant]
     Active Substance: DILTIAZEM HYDROCHLORIDE
  10. OMEPRAZOLE [Concomitant]
     Active Substance: OMEPRAZOLE
  11. INSULIN NOS [Concomitant]
     Active Substance: INSULIN NOS
  12. PERCOCET [Concomitant]
     Active Substance: ACETAMINOPHEN\OXYCODONE HYDROCHLORIDE
  13. METOPROLOL [Concomitant]
     Active Substance: METOPROLOL

REACTIONS (1)
  - Death [Fatal]
